FAERS Safety Report 7412092-6 (Version None)
Quarter: 2011Q2

REPORT INFORMATION
  Report Type: 
  Country: None (occurrence: None)
  Receive Date: 20110413
  Receipt Date: 20110401
  Transmission Date: 20111010
  Serious: Yes (Other)
  Sender: FDA-Public Use
  Company Number: US-BAYER-2011-028503

PATIENT
  Sex: Female

DRUGS (1)
  1. MIRENA [Suspect]
     Indication: CONTRACEPTION
     Dosage: 20 ?G, CONT
     Route: 015
     Dates: start: 20110312, end: 20110328

REACTIONS (4)
  - PARAESTHESIA [None]
  - ABASIA [None]
  - HYPOAESTHESIA [None]
  - BLOOD PRESSURE INCREASED [None]
